FAERS Safety Report 6482772-8 (Version None)
Quarter: 2009Q4

REPORT INFORMATION
  Report Type: 
  Country: None (occurrence: None)
  Receive Date: 20091209
  Receipt Date: 20091202
  Transmission Date: 20100525
  Serious: Yes (Hospitalization)
  Sender: FDA-Public Use
  Company Number: NL-ABBOTT-09P-114-0581955-00

PATIENT
  Sex: Female
  Weight: 75 kg

DRUGS (1)
  1. HUMIRA [Suspect]
     Indication: RHEUMATOID ARTHRITIS
     Route: 058
     Dates: start: 20040517, end: 20090513

REACTIONS (4)
  - HYPERCALCAEMIA [None]
  - NEPHRITIS [None]
  - NORMOCHROMIC NORMOCYTIC ANAEMIA [None]
  - SARCOIDOSIS [None]
